FAERS Safety Report 7517166-7 (Version None)
Quarter: 2011Q2

REPORT INFORMATION
  Report Type: 
  Country: None (occurrence: None)
  Receive Date: 20110601
  Receipt Date: 20110519
  Transmission Date: 20111010
  Serious: Yes (Death)
  Sender: FDA-Public Use
  Company Number: FR-PFIZER INC-FR-WYE-G00835008

PATIENT
  Age: 72 Year
  Sex: Male

DRUGS (7)
  1. ADVIL LIQUI-GELS [Suspect]
     Dosage: UNKNOWN
     Route: 048
     Dates: start: 20071203
  2. PRAZEPAM [Suspect]
     Route: 048
  3. PAROXETINE HCL [Suspect]
     Route: 048
  4. MOXIFLOXACIN HCL [Suspect]
     Dosage: UNKNOWN
     Route: 048
     Dates: start: 20071203
  5. AMITRIPTYLINE HCL [Suspect]
     Route: 048
  6. LYRICA [Suspect]
     Route: 048
  7. ACETAMINOPHEN [Suspect]
     Dosage: UNKNOWN
     Route: 048
     Dates: start: 20071203

REACTIONS (1)
  - SUDDEN DEATH [None]
